FAERS Safety Report 10057716 (Version 1)
Quarter: 2014Q2

REPORT INFORMATION
  Report Type: Spontaneous
  Country: US (occurrence: US)
  Receive Date: 20140404
  Receipt Date: 20140404
  Transmission Date: 20141212
  Serious: No
  Sender: FDA-Public Use
  Company Number: US-BIOGENIDEC-2013BI084850

PATIENT
  Age: 37 Year
  Sex: Female

DRUGS (8)
  1. TECFIDERA [Suspect]
     Indication: MULTIPLE SCLEROSIS
     Route: 048
     Dates: start: 20130802, end: 20130808
  2. TECFIDERA [Suspect]
     Indication: MULTIPLE SCLEROSIS
     Route: 048
     Dates: start: 20130809
  3. TECFIDERA [Suspect]
     Indication: MULTIPLE SCLEROSIS
     Route: 048
     Dates: start: 20130815
  4. VITAMIN B12 [Concomitant]
  5. IRON [Concomitant]
  6. TYLENOL [Concomitant]
  7. EXCEDRIN [Concomitant]
  8. CENTRUM SILVER [Concomitant]

REACTIONS (3)
  - Headache [Not Recovered/Not Resolved]
  - Pruritus [Recovered/Resolved]
  - Abdominal pain upper [Not Recovered/Not Resolved]
